FAERS Safety Report 5264884-X (Version None)
Quarter: 2007Q1

REPORT INFORMATION
  Report Type: 
  Country: None (occurrence: None)
  Receive Date: 20070314
  Receipt Date: 20070309
  Transmission Date: 20070707
  Serious: Yes (Life-Threatening)
  Sender: FDA-Public Use
  Company Number: HQWYE224109MAR07

PATIENT
  Sex: Male

DRUGS (1)
  1. PANTOZOL [Suspect]
     Indication: REFLUX OESOPHAGITIS
     Route: 048
     Dates: start: 20060109, end: 20060123

REACTIONS (2)
  - HEPATIC FAILURE [None]
  - HEPATOTOXICITY [None]
